FAERS Safety Report 20357407 (Version 2)
Quarter: 2022Q1

REPORT INFORMATION
  Report Type: Report from Study
  Country: CN (occurrence: CN)
  Receive Date: 20220120
  Receipt Date: 20220321
  Transmission Date: 20220423
  Serious: Yes (Hospitalization)
  Sender: FDA-Public Use
  Company Number: CN-GILEAD-2022-0566209

PATIENT
  Sex: Male
  Weight: 65 kg

DRUGS (15)
  1. BICTEGRAVIR\EMTRICITABINE\TENOFOVIR ALAFENAMIDE [Suspect]
     Active Substance: BICTEGRAVIR\EMTRICITABINE\TENOFOVIR ALAFENAMIDE
     Indication: HIV infection
     Dosage: 1 DOSAGE FORM, QD
     Route: 048
     Dates: start: 20211213
  2. TINIDAZOLE [Concomitant]
     Active Substance: TINIDAZOLE
     Route: 041
     Dates: start: 20211223, end: 20211223
  3. SODIUM CHLORIDE [Concomitant]
     Active Substance: SODIUM CHLORIDE
     Route: 041
     Dates: start: 20211209, end: 20211231
  4. CHLORHEXIDINE GARGLE [Concomitant]
     Route: 050
     Dates: start: 20211223, end: 20211231
  5. ORNIDAZOLE [Concomitant]
     Active Substance: ORNIDAZOLE
     Route: 041
     Dates: start: 20211223, end: 20211227
  6. POTASSIUM CITRATE [Concomitant]
     Active Substance: POTASSIUM CITRATE
     Route: 048
     Dates: start: 20211225, end: 20211231
  7. CEFACLOR EXTENDED RELEASE [Concomitant]
     Route: 048
     Dates: start: 20211227, end: 20211231
  8. METHYLPREDNISOLONE SODIUM SUCCINATE [Concomitant]
     Active Substance: METHYLPREDNISOLONE SODIUM SUCCINATE
     Route: 041
     Dates: start: 20211209, end: 20211231
  9. OMEPRAZOLE SODIUM [Concomitant]
     Active Substance: OMEPRAZOLE SODIUM
     Route: 041
     Dates: start: 20211209, end: 20211231
  10. ALBUMIN HUMAN [Concomitant]
     Active Substance: ALBUMIN HUMAN
     Route: 041
     Dates: start: 20211209, end: 20211228
  11. DEXTROSE [Concomitant]
     Active Substance: DEXTROSE
     Route: 041
     Dates: start: 20211209, end: 20211231
  12. UNSPECIFIED INGREDIENT [Concomitant]
     Active Substance: UNSPECIFIED INGREDIENT
     Route: 041
     Dates: start: 20211209, end: 20211231
  13. POTASSIUM CHLORIDE [Concomitant]
     Active Substance: POTASSIUM CHLORIDE
     Route: 041
     Dates: start: 20211209, end: 20211231
  14. MAGNESIUM ISOGLYCYRRHIZINATE [Concomitant]
     Active Substance: MAGNESIUM ISOGLYCYRRHIZINATE
     Indication: Hepatic enzyme increased
     Route: 041
     Dates: start: 20211209, end: 20211231
  15. THROMBOPOIETIN [Concomitant]
     Active Substance: THROMBOPOIETIN
     Route: 041
     Dates: start: 20211210, end: 20211224

REACTIONS (1)
  - Pneumonia [Recovered/Resolved]

NARRATIVE: CASE EVENT DATE: 20220115
